FAERS Safety Report 7497952-2 (Version None)
Quarter: 2011Q2

REPORT INFORMATION
  Report Type: 
  Country: None (occurrence: None)
  Receive Date: 20110524
  Receipt Date: 20110428
  Transmission Date: 20111010
  Serious: Yes (Hospitalization, Other)
  Sender: FDA-Public Use
  Company Number: US-BAYER-2011-017399

PATIENT
  Age: 29 Year
  Sex: Female
  Weight: 104.31 kg

DRUGS (7)
  1. PAXIL [Concomitant]
  2. NAPROXEN [Concomitant]
  3. YASMIN [Suspect]
     Indication: ACNE
  4. YAZ [Suspect]
     Indication: ACNE
     Dosage: UNK
     Dates: start: 20090101, end: 20091201
  5. ADVIL LIQUI-GELS [Concomitant]
     Dosage: UNK
     Dates: start: 19920101
  6. IBUPROFEN [Concomitant]
     Dosage: UNK
     Dates: start: 20080101
  7. DROSPIRENONE AND ETHINYL ESTRADIOL [Suspect]
     Indication: ACNE

REACTIONS (3)
  - GALLBLADDER DISORDER [None]
  - PAIN [None]
  - CHOLECYSTITIS CHRONIC [None]
